FAERS Safety Report 17620915 (Version 1)
Quarter: 2020Q2

REPORT INFORMATION
  Report Type: Report from Study
  Country: CN (occurrence: CN)
  Receive Date: 20200403
  Receipt Date: 20200403
  Transmission Date: 20200713
  Serious: Yes (Other)
  Sender: FDA-Public Use
  Company Number: CN-SUN PHARMACEUTICAL INDUSTRIES LTD-2020R1-242327

PATIENT
  Age: 52 Year
  Sex: Male

DRUGS (2)
  1. DOXORUBICIN [Suspect]
     Active Substance: DOXORUBICIN
     Indication: CLEAR CELL SARCOMA OF SOFT TISSUE
     Dosage: 37.5 MG/M2 PER DAY ON DAYS 2 AND 3 EVERY 21 DAYS
     Route: 042
  2. PEMBROLIZUMAB. [Suspect]
     Active Substance: PEMBROLIZUMAB
     Indication: CLEAR CELL SARCOMA OF SOFT TISSUE
     Dosage: 200 MG
     Route: 065

REACTIONS (1)
  - Therapy partial responder [Unknown]
